FAERS Safety Report 9248097 (Version 1)
Quarter: 2013Q2

REPORT INFORMATION
  Report Type: Spontaneous
  Country: US (occurrence: None)
  Receive Date: 20130419
  Receipt Date: 20130419
  Transmission Date: 20140414
  Serious: Yes (Hospitalization)
  Sender: FDA-Public Use
  Company Number: None

PATIENT
  Age: 64 Year
  Sex: Male
  Weight: 56.7 kg

DRUGS (1)
  1. INVANZ [Suspect]
     Indication: OSTEOMYELITIS
     Route: 042
     Dates: start: 20130406, end: 20130413

REACTIONS (4)
  - Vomiting [None]
  - Pyrexia [None]
  - Confusional state [None]
  - Convulsion [None]
